FAERS Safety Report 17030284 (Version 1)
Quarter: 2019Q4

REPORT INFORMATION
  Report Type: Spontaneous
  Country: IT (occurrence: IT)
  Receive Date: 20191114
  Receipt Date: 20191114
  Transmission Date: 20200122
  Serious: Yes (Other)
  Sender: FDA-Public Use
  Company Number: IT-PFIZER INC-2019489784

PATIENT
  Age: 90 Year
  Sex: Female

DRUGS (8)
  1. TAVOR [FLUCONAZOLE] [Concomitant]
     Active Substance: FLUCONAZOLE
     Dosage: UNK
  2. CARDICOR [Suspect]
     Active Substance: BISOPROLOL
     Indication: TACHYCARDIA
     Dosage: 10 MG, 1X/DAY (QD)
     Route: 048
     Dates: start: 20190503
  3. TRIATEC [RAMIPRIL] [Concomitant]
     Active Substance: RAMIPRIL
     Dosage: UNK
  4. CORDARONE X [Suspect]
     Active Substance: AMIODARONE HYDROCHLORIDE
     Indication: TACHYCARDIA
     Dosage: 200 MG, 1X/DAY (QD)
     Route: 048
     Dates: start: 20190503
  5. TOTALIP [Concomitant]
     Active Substance: ATORVASTATIN
     Dosage: UNK
  6. ELIQUIS [Concomitant]
     Active Substance: APIXABAN
     Dosage: UNK
  7. MOVICOL [Concomitant]
     Active Substance: POLYETHYLENE GLYCOL 3350\POTASSIUM CHLORIDE\SODIUM BICARBONATE\SODIUM CHLORIDE
     Dosage: UNK
  8. PANTORC [Concomitant]
     Active Substance: PANTOPRAZOLE SODIUM
     Dosage: UNK

REACTIONS (2)
  - Tachycardia [Recovering/Resolving]
  - Drug ineffective [Unknown]

NARRATIVE: CASE EVENT DATE: 20191004
